FAERS Safety Report 18059875 (Version 1)
Quarter: 2020Q3

REPORT INFORMATION
  Report Type: Spontaneous
  Country: US (occurrence: US)
  Receive Date: 20200723
  Receipt Date: 20200723
  Transmission Date: 20201103
  Serious: No
  Sender: FDA-Public Use
  Company Number: US-RECKITT BENCKISER HEALTHCARE INT LIMITED-RB-86724-2019

PATIENT
  Age: 69 Year
  Sex: Female

DRUGS (1)
  1. MUCINEX DM MAXIMUM STRENGTH [Suspect]
     Active Substance: DEXTROMETHORPHAN HYDROBROMIDE\GUAIFENESIN
     Indication: PRODUCT USED FOR UNKNOWN INDICATION
     Dosage: TOOK 1 DF ON 11?JU2019 AT NIGHT AND 1 ON 12?JUN?2019 IN THE MORNING
     Route: 065
     Dates: start: 20190611

REACTIONS (6)
  - Tremor [Unknown]
  - Asthenia [Unknown]
  - Nervous system disorder [Unknown]
  - Rash [Unknown]
  - Anxiety [Not Recovered/Not Resolved]
  - Palpitations [Unknown]

NARRATIVE: CASE EVENT DATE: 20190612
